FAERS Safety Report 6830751-0 (Version None)
Quarter: 2010Q3

REPORT INFORMATION
  Report Type: 
  Country: None (occurrence: None)
  Receive Date: 20100712
  Receipt Date: 20100627
  Transmission Date: 20110219
  Serious: Yes (Other)
  Sender: FDA-Public Use
  Company Number: PHHY2010MX42834

PATIENT
  Sex: Male

DRUGS (5)
  1. ACLASTA [Suspect]
     Dosage: 5 MG/ 100ML PER YEAR
     Route: 042
     Dates: start: 20090203
  2. CALCIUM [Concomitant]
  3. METICORTEN [Concomitant]
  4. DOLO-NEUROBION [Concomitant]
  5. ACTRON [Concomitant]

REACTIONS (1)
  - MUSCLE INJURY [None]
